FAERS Safety Report 20661552 (Version 1)
Quarter: 2022Q2

REPORT INFORMATION
  Report Type: Spontaneous
  Country: JP (occurrence: JP)
  Receive Date: 20220401
  Receipt Date: 20220401
  Transmission Date: 20220721
  Serious: Yes (Death, Hospitalization, Other)
  Sender: FDA-Public Use
  Company Number: JP-MSD-M2021-27703

PATIENT
  Age: 7 Decade
  Sex: Male

DRUGS (1)
  1. KEYTRUDA [Suspect]
     Active Substance: PEMBROLIZUMAB
     Indication: Nasal sinus cancer
     Dosage: 200 MILLIGRAM, Q3W
     Route: 041

REACTIONS (2)
  - Malignant neoplasm progression [Fatal]
  - Immune-mediated hepatic disorder [Recovered/Resolved]
